FAERS Safety Report 24342122 (Version 2)
Quarter: 2025Q3

REPORT INFORMATION
  Report Type: Report from Study
  Country: CA (occurrence: CA)
  Receive Date: 20240920
  Receipt Date: 20250822
  Transmission Date: 20251021
  Serious: Yes (Other)
  Sender: CSL BEHRING
  Company Number: CA-BEH-2024174012

PATIENT
  Age: 73 Year
  Sex: Male
  Weight: 98 kg

DRUGS (4)
  1. HIZENTRA [Suspect]
     Active Substance: HUMAN IMMUNOGLOBULIN G
     Indication: Secondary immunodeficiency
     Dosage: 10 G, QW
     Route: 065
     Dates: start: 20240306
  2. HIZENTRA [Suspect]
     Active Substance: HUMAN IMMUNOGLOBULIN G
     Route: 065
     Dates: start: 20240818
  3. HIZENTRA [Suspect]
     Active Substance: HUMAN IMMUNOGLOBULIN G
     Route: 065
     Dates: start: 20240901
  4. HIZENTRA [Suspect]
     Active Substance: HUMAN IMMUNOGLOBULIN G
     Dosage: 10 G, QW
     Route: 058
     Dates: start: 20240306

REACTIONS (7)
  - Infusion site haematoma [Unknown]
  - Intra-abdominal haematoma [Unknown]
  - Visual impairment [Unknown]
  - COVID-19 [Unknown]
  - Product dose omission in error [Unknown]
  - Influenza [Unknown]
  - Therapy interrupted [Unknown]
